FAERS Safety Report 6961884-6 (Version None)
Quarter: 2010Q3

REPORT INFORMATION
  Report Type: 
  Country: None (occurrence: None)
  Receive Date: 20100902
  Receipt Date: 20100824
  Transmission Date: 20110219
  Serious: No
  Sender: FDA-Public Use
  Company Number: US-BIOGENIDEC-2010BI025885

PATIENT
  Age: 42 Year
  Sex: Female

DRUGS (1)
  1. TYSABRI [Suspect]
     Indication: MULTIPLE SCLEROSIS
     Route: 042
     Dates: start: 20100601, end: 20100727

REACTIONS (15)
  - CHEST DISCOMFORT [None]
  - CHEST PAIN [None]
  - DIZZINESS [None]
  - DYSSTASIA [None]
  - ERYTHEMA [None]
  - FEELING HOT [None]
  - FLUSHING [None]
  - INFLUENZA LIKE ILLNESS [None]
  - MUSCULOSKELETAL STIFFNESS [None]
  - OROPHARYNGEAL PAIN [None]
  - PAIN [None]
  - RESTLESS LEGS SYNDROME [None]
  - SOMNOLENCE [None]
  - SUNBURN [None]
  - THROAT TIGHTNESS [None]
